FAERS Safety Report 7546887-5 (Version None)
Quarter: 2011Q2

REPORT INFORMATION
  Report Type: 
  Country: None (occurrence: None)
  Receive Date: 20110614
  Receipt Date: 20110601
  Transmission Date: 20111010
  Serious: Yes (Other)
  Sender: FDA-Public Use
  Company Number: TR-TYCO HEALTHCARE/MALLINCKRODT-T201101207

PATIENT
  Age: 29 Year
  Sex: Female

DRUGS (1)
  1. SODIUM IODIDE I 131 [Suspect]
     Indication: THYROID CANCER
     Dosage: UNK

REACTIONS (2)
  - DRUG EXPOSURE DURING PREGNANCY [None]
  - ABORTION SPONTANEOUS [None]
